FAERS Safety Report 17668501 (Version 2)
Quarter: 2020Q4

REPORT INFORMATION
  Report Type: Report from Study
  Country: None (occurrence: US)
  Receive Date: 20200415
  Receipt Date: 20201116
  Transmission Date: 20210113
  Serious: Yes (Other)
  Sender: FDA-Public Use
  Company Number: US-ABBVIE-20P-163-3220002-00

PATIENT
  Sex: Female

DRUGS (3)
  1. IMBRUVICA [Suspect]
     Active Substance: IBRUTINIB
     Route: 048
  2. IMBRUVICA [Suspect]
     Active Substance: IBRUTINIB
     Route: 048
  3. IMBRUVICA [Suspect]
     Active Substance: IBRUTINIB
     Indication: MANTLE CELL LYMPHOMA
     Route: 048
     Dates: start: 20180524

REACTIONS (9)
  - Blood immunoglobulin G decreased [Unknown]
  - Insomnia [Unknown]
  - Poor quality sleep [Unknown]
  - Gastrointestinal disorder [Not Recovered/Not Resolved]
  - Skin haemorrhage [Unknown]
  - Skin atrophy [Unknown]
  - Increased tendency to bruise [Unknown]
  - Unevaluable event [Unknown]
  - Eye operation [Unknown]
